FAERS Safety Report 14673710 (Version 1)
Quarter: 2018Q1

REPORT INFORMATION
  Report Type: Spontaneous
  Country: BE (occurrence: BE)
  Receive Date: 20180323
  Receipt Date: 20180323
  Transmission Date: 20180509
  Serious: Yes (Other)
  Sender: FDA-Public Use
  Company Number: BE-SHENZHEN TECHDOW PHARMACEUTICAL CO. LTD-BE-2018TEC0000012

PATIENT
  Age: 22 Year
  Sex: Female

DRUGS (2)
  1. HEPARIN SODIUM INJECTION USP, PRESERVATIVE FREE [Suspect]
     Active Substance: HEPARIN SODIUM
     Indication: INTRACARDIAC THROMBUS
  2. HEPARIN SODIUM INJECTION USP, PRESERVATIVE FREE [Suspect]
     Active Substance: HEPARIN SODIUM
     Indication: PULMONARY THROMBOSIS

REACTIONS (1)
  - Hyperkalaemia [Recovered/Resolved]
